FAERS Safety Report 4912558-4 (Version None)
Quarter: 2006Q1

REPORT INFORMATION
  Report Type: 
  Country: None (occurrence: None)
  Receive Date: 20060215
  Receipt Date: 20060209
  Transmission Date: 20060701
  Serious: Yes (Other)
  Sender: FDA-Public Use
  Company Number: US-BRISTOL-MYERS SQUIBB COMPANY-13277876

PATIENT
  Age: 5 Month
  Sex: Female

DRUGS (2)
  1. GLUCOPHAGE XR [Suspect]
     Route: 050
  2. PRENATAL VITAMINS [Concomitant]
     Route: 050

REACTIONS (1)
  - TREMOR [None]
